FAERS Safety Report 4815473-X (Version None)
Quarter: 2005Q4

REPORT INFORMATION
  Report Type: 
  Country: None (occurrence: None)
  Receive Date: 20051028
  Receipt Date: 20051028
  Transmission Date: 20060501
  Serious: Yes (Hospitalization)
  Sender: FDA-Public Use
  Company Number: None

PATIENT
  Age: 72 Year
  Sex: Male
  Weight: 90 kg

DRUGS (7)
  1. LOVENOX [Suspect]
     Indication: ACUTE CORONARY SYNDROME
     Dosage: 90MG ONE TIME DOSE SQ
     Route: 058
     Dates: start: 20051007, end: 20051007
  2. AMITRIPTYLINE HCL [Concomitant]
  3. ANACIN [Concomitant]
  4. PREDNISONE [Concomitant]
  5. TAMSULOSIN [Concomitant]
  6. RANITIDINE [Concomitant]
  7. VITAMIN B-12 [Concomitant]

REACTIONS (6)
  - CHEST PAIN [None]
  - DYSPHAGIA [None]
  - DYSPNOEA EXERTIONAL [None]
  - EYELID OEDEMA [None]
  - RASH [None]
  - SWOLLEN TONGUE [None]
